FAERS Safety Report 10043317 (Version 1)
Quarter: 2014Q1

REPORT INFORMATION
  Report Type: Spontaneous
  Country: JP (occurrence: JP)
  Receive Date: 20140328
  Receipt Date: 20140328
  Transmission Date: 20141002
  Serious: Yes (Hospitalization)
  Sender: FDA-Public Use
  Company Number: JP-AMGEN-JPNSP2014022230

PATIENT
  Age: 64 Year
  Sex: Female

DRUGS (1)
  1. PRALIA [Suspect]
     Indication: PRODUCT USED FOR UNKNOWN INDICATION
     Dosage: 60 MG, TWICE
     Route: 058

REACTIONS (2)
  - Liver function test abnormal [Recovered/Resolved]
  - Alopecia [Recovered/Resolved]
